FAERS Safety Report 10017330 (Version 2)
Quarter: 2014Q1

REPORT INFORMATION
  Report Type: Spontaneous
  Country: DE (occurrence: DE)
  Receive Date: 20140318
  Receipt Date: 20140331
  Transmission Date: 20141002
  Serious: Yes (Hospitalization, Other)
  Sender: FDA-Public Use
  Company Number: DE-JNJFOC-20140308621

PATIENT
  Age: 73 Year
  Sex: Male
  Weight: 80 kg

DRUGS (10)
  1. XARELTO [Suspect]
     Indication: CEREBROVASCULAR ACCIDENT PROPHYLAXIS
     Route: 048
     Dates: end: 2014
  2. SIMVASTATIN [Concomitant]
     Route: 065
  3. GLIBENCLAMID [Concomitant]
     Route: 065
  4. JANUMET [Concomitant]
     Route: 065
  5. EUGLUCON [Concomitant]
     Route: 065
  6. RAMIPRIL [Concomitant]
     Route: 065
  7. ASS [Concomitant]
     Route: 065
  8. MONO-EMBOLEX [Concomitant]
     Route: 065
  9. METFORMIN [Concomitant]
     Route: 065
  10. SITAGLIPTIN [Concomitant]
     Route: 065

REACTIONS (2)
  - Brain stem stroke [Unknown]
  - Off label use [Unknown]
